FAERS Safety Report 4480071-7 (Version None)
Quarter: 2004Q4

REPORT INFORMATION
  Report Type: 
  Country: None (occurrence: None)
  Receive Date: 20041018
  Receipt Date: 20041004
  Transmission Date: 20050328
  Serious: Yes (Other)
  Sender: FDA-Public Use
  Company Number: 2004073317

PATIENT
  Sex: Male

DRUGS (1)
  1. NARDIL [Suspect]
     Indication: ILL-DEFINED DISORDER
     Dosage: 60 MG

REACTIONS (5)
  - ANXIETY [None]
  - CONDITION AGGRAVATED [None]
  - FEELING JITTERY [None]
  - VISION BLURRED [None]
  - VITREOUS DETACHMENT [None]
